FAERS Safety Report 13609864 (Version 1)
Quarter: 2017Q2

REPORT INFORMATION
  Report Type: Report from Study
  Country: None (occurrence: CO)
  Receive Date: 20170603
  Receipt Date: 20170603
  Transmission Date: 20170830
  Serious: Yes (Hospitalization)
  Sender: FDA-Public Use
  Company Number: CO-ABBVIE-17P-036-1996174-00

PATIENT
  Age: 1 Month
  Sex: Male
  Weight: 3 kg

DRUGS (1)
  1. SYNAGIS [Suspect]
     Active Substance: PALIVIZUMAB
     Indication: BRONCHOPULMONARY DYSPLASIA
     Route: 030
     Dates: start: 20170506

REACTIONS (2)
  - Respiratory tract congestion [Recovering/Resolving]
  - Bronchiolitis [Recovering/Resolving]

NARRATIVE: CASE EVENT DATE: 20170526
